FAERS Safety Report 6427105-8 (Version None)
Quarter: 2009Q4

REPORT INFORMATION
  Report Type: 
  Country: None (occurrence: None)
  Receive Date: 20091026
  Receipt Date: 20091020
  Transmission Date: 20100525
  Serious: Yes (Other)
  Sender: FDA-Public Use
  Company Number: A0809453A

PATIENT
  Age: 84 Year
  Sex: Female

DRUGS (2)
  1. SIMETHICONE TABLET-CHEWABLE (SIMETHICONE) [Suspect]
     Indication: FLATULENCE
     Dosage: ORAL
     Route: 048
     Dates: end: 20090921
  2. PANTOPRAZOLE [Concomitant]

REACTIONS (11)
  - ABDOMINAL PAIN LOWER [None]
  - CONVULSION [None]
  - DIARRHOEA [None]
  - FAECES DISCOLOURED [None]
  - FLATULENCE [None]
  - GASTROINTESTINAL DISORDER [None]
  - MUSCLE TWITCHING [None]
  - NERVOUS SYSTEM DISORDER [None]
  - OEDEMA PERIPHERAL [None]
  - PALPITATIONS [None]
  - SPLEEN DISORDER [None]
